FAERS Safety Report 23583682 (Version 1)
Quarter: 2024Q1

REPORT INFORMATION
  Report Type: Spontaneous
  Country: US (occurrence: US)
  Receive Date: 20240301
  Receipt Date: 20240301
  Transmission Date: 20240410
  Serious: No
  Sender: FDA-Public Use
  Company Number: US-ALKEM LABORATORIES LIMITED-US-ALKEM-2023-04202

PATIENT
  Sex: Female

DRUGS (1)
  1. FINASTERIDE [Suspect]
     Active Substance: FINASTERIDE
     Indication: Hair growth abnormal
     Dosage: 1 MILLIGRAM
     Route: 065
     Dates: start: 20230110, end: 20230319

REACTIONS (2)
  - Product use issue [Unknown]
  - Alopecia [Unknown]
